FAERS Safety Report 7828661-5 (Version None)
Quarter: 2011Q4

REPORT INFORMATION
  Report Type: 
  Country: None (occurrence: None)
  Receive Date: 20111020
  Receipt Date: 20111011
  Transmission Date: 20120403
  Serious: Yes (Other)
  Sender: FDA-Public Use
  Company Number: US-JNJFOC-20111006395

PATIENT
  Age: 19 Year
  Sex: Female
  Weight: 52.62 kg

DRUGS (2)
  1. ORTHO TRI-CYCLEN [Suspect]
     Route: 048
     Dates: start: 20100601
  2. ORTHO TRI-CYCLEN [Suspect]
     Indication: ACNE
     Route: 048
     Dates: start: 20110901

REACTIONS (6)
  - GASTROOESOPHAGEAL REFLUX DISEASE [None]
  - PROGESTERONE DECREASED [None]
  - PALPITATIONS [None]
  - NAUSEA [None]
  - BLOOD IRON DECREASED [None]
  - FATIGUE [None]
